FAERS Safety Report 8125894 (Version 3)
Quarter: 2014Q1

REPORT INFORMATION
  Report Type: Spontaneous
  Country: US (occurrence: US)
  Receive Date: 20110908
  Receipt Date: 20140128
  Transmission Date: 20141002
  Serious: Yes (Hospitalization)
  Sender: FDA-Public Use
  Company Number: US-BAYER-2011-081959

PATIENT
  Age: 34 Year
  Sex: Female
  Weight: 73 kg

DRUGS (2)
  1. YASMIN [Suspect]
     Indication: CONTRACEPTION
     Dosage: UNK
     Dates: start: 200202, end: 200311
  2. ALDACTONE [SPIRONOLACTONE] [Concomitant]
     Indication: ALOPECIA
     Dosage: UNK
     Dates: start: 2002, end: 2005

REACTIONS (8)
  - Cholecystitis chronic [None]
  - Gallbladder disorder [None]
  - Injury [None]
  - Pain [None]
  - Anxiety [None]
  - Anhedonia [None]
  - Psychological trauma [None]
  - Abdominal pain [None]
